FAERS Safety Report 4538605-X (Version None)
Quarter: 2004Q4

REPORT INFORMATION
  Report Type: 
  Country: None (occurrence: None)
  Receive Date: 20041222
  Receipt Date: 20040907
  Transmission Date: 20050328
  Serious: Yes (Death, Hospitalization)
  Sender: FDA-Public Use
  Company Number: 2001-BP-03099

PATIENT
  Age: 52 Year
  Sex: Female

DRUGS (1)
  1. MOBIC [Suspect]
     Indication: ARTHRITIS
     Dosage: 15 MG (15 MG, 1 TA OD), PO
     Route: 048
     Dates: start: 20010505, end: 20010509

REACTIONS (1)
  - DEATH [None]
